FAERS Safety Report 7979166-2 (Version None)
Quarter: 2011Q4

REPORT INFORMATION
  Report Type: 
  Country: None (occurrence: None)
  Receive Date: 20111214
  Receipt Date: 20111212
  Transmission Date: 20120403
  Serious: Yes (Death, Other)
  Sender: FDA-Public Use
  Company Number: JP-ABBOTT-10P-087-0675919-00

PATIENT
  Sex: Female
  Weight: 53 kg

DRUGS (5)
  1. HUMIRA [Suspect]
     Indication: RHEUMATOID ARTHRITIS
     Route: 058
     Dates: start: 20090824, end: 20100823
  2. AN EXTRACT OBTAINED FROM INFLAMMATORY RABBIT SKIN INOCULATED BY VACCIN [Concomitant]
     Indication: RHEUMATOID ARTHRITIS
     Dosage: 16 UNIT DAILY
     Dates: start: 20090824, end: 20100831
  3. ALENDRONATE SODIUM [Concomitant]
     Indication: OSTEOPOROSIS PROPHYLAXIS
     Dates: start: 20090824, end: 20100831
  4. ALFACALCIDOL [Concomitant]
     Indication: OSTEOPOROSIS PROPHYLAXIS
     Dosage: 1 MCG DAILY
     Dates: start: 20090824, end: 20100831
  5. MIZORIBINE [Concomitant]
     Indication: RHEUMATOID ARTHRITIS
     Dosage: 150 MG DAILY
     Dates: start: 20090824, end: 20100830

REACTIONS (2)
  - JOINT INSTABILITY [None]
  - PULMONARY EMBOLISM [None]
